FAERS Safety Report 6129997-9 (Version None)
Quarter: 2009Q1

REPORT INFORMATION
  Report Type: 
  Country: None (occurrence: None)
  Receive Date: 20090324
  Receipt Date: 20090316
  Transmission Date: 20090719
  Serious: Yes (Other)
  Sender: FDA-Public Use
  Company Number: CA-ALLERGAN-0903581US

PATIENT
  Sex: Female

DRUGS (1)
  1. LUMIGAN [Suspect]
     Indication: DRUG USE FOR UNKNOWN INDICATION
     Dosage: UNK, UNKNOWN
     Route: 047

REACTIONS (3)
  - ACNE [None]
  - BLISTER [None]
  - EYE DISCHARGE [None]
